FAERS Safety Report 14878692 (Version 2)
Quarter: 2018Q3

REPORT INFORMATION
  Report Type: Spontaneous
  Country: US (occurrence: US)
  Receive Date: 20180511
  Receipt Date: 20180711
  Transmission Date: 20181010
  Serious: No
  Sender: FDA-Public Use
  Company Number: US-ASTRAZENECA-2018SE48518

PATIENT
  Age: 29689 Day
  Sex: Male
  Weight: 76.2 kg

DRUGS (2)
  1. BEVESPI AEROSPHERE [Suspect]
     Active Substance: FORMOTEROL FUMARATE\GLYCOPYRROLATE
     Indication: CHRONIC OBSTRUCTIVE PULMONARY DISEASE
     Dosage: 9MCG/4.8 MCG, TWO INHALATIONS TWO TIMES A DAY
     Route: 055
     Dates: start: 201712
  2. BEVESPI AEROSPHERE [Suspect]
     Active Substance: FORMOTEROL FUMARATE\GLYCOPYRROLATE
     Indication: EMPHYSEMA
     Dosage: 9MCG/4.8 MCG, TWO INHALATIONS TWO TIMES A DAY
     Route: 055
     Dates: start: 201712

REACTIONS (8)
  - Product cleaning inadequate [Unknown]
  - Device malfunction [Unknown]
  - Drug dose omission [Unknown]
  - Device failure [Unknown]
  - Intentional product misuse [Unknown]
  - Underdose [Unknown]
  - Product packaging quantity issue [Unknown]
  - Secretion discharge [Unknown]

NARRATIVE: CASE EVENT DATE: 20180410
